FAERS Safety Report 7076148-2 (Version None)
Quarter: 2010Q4

REPORT INFORMATION
  Report Type: 
  Country: None (occurrence: None)
  Receive Date: 20101101
  Receipt Date: 20101006
  Transmission Date: 20110411
  Serious: Yes (Hospitalization)
  Sender: FDA-Public Use
  Company Number: US-BAYER-201021136NA

PATIENT
  Age: 36 Year
  Sex: Female
  Weight: 51 kg

DRUGS (10)
  1. YAZ [Suspect]
     Indication: CONTRACEPTION
     Route: 048
     Dates: start: 20080901, end: 20090901
  2. YASMIN [Suspect]
     Route: 048
     Dates: start: 20080901
  3. DROSPIRENONE AND ETHINYL ESTRADIOL [Suspect]
     Route: 048
     Dates: start: 20080901
  4. PREVACID [Concomitant]
     Indication: ABDOMINAL PAIN UPPER
     Dates: start: 20040101
  5. CLARITIN [Concomitant]
     Indication: SINUS DISORDER
  6. ASACOL [Concomitant]
  7. CENTRUM PERFORMANCE [Concomitant]
     Dosage: DAILY
  8. TREXIMET [Concomitant]
  9. ZANTAC [Concomitant]
  10. ALIGHN [Concomitant]

REACTIONS (5)
  - ABDOMINAL PAIN UPPER [None]
  - CHOLECYSTITIS CHRONIC [None]
  - CHOLELITHIASIS [None]
  - NAUSEA [None]
  - VOMITING [None]
